FAERS Safety Report 8620425-8 (Version None)
Quarter: 2012Q3

REPORT INFORMATION
  Report Type: 
  Country: None (occurrence: None)
  Receive Date: 20120824
  Receipt Date: 20120817
  Transmission Date: 20120928
  Serious: Yes (Other)
  Sender: FDA-Public Use
  Company Number: GB-B.I. PHARMACEUTICALS,INC./RIDGEFIELD-2012-UK-01091UK

PATIENT
  Age: 78 Year
  Sex: Male

DRUGS (6)
  1. TRIMEPRAZINE TAB [Concomitant]
     Dosage: 10 MG
     Route: 048
  2. RAMIPRIL [Concomitant]
     Dosage: 1.25 MG
     Route: 048
  3. ASPIRIN [Concomitant]
     Dosage: 75 MG
     Route: 048
  4. SOTALOL HCL [Concomitant]
     Dosage: 80 MG
     Route: 048
  5. ZOLPIDEM [Concomitant]
     Dosage: 5 MG
     Route: 048
  6. PRADAXA [Suspect]
     Indication: ANTICOAGULANT THERAPY
     Dosage: 220 MG
     Route: 048
     Dates: start: 20120725

REACTIONS (3)
  - SENSATION OF FOREIGN BODY [None]
  - CHEST DISCOMFORT [None]
  - DYSPEPSIA [None]
